FAERS Safety Report 7271554-5 (Version None)
Quarter: 2011Q1

REPORT INFORMATION
  Report Type: 
  Country: None (occurrence: None)
  Receive Date: 20110128
  Receipt Date: 20110128
  Transmission Date: 20110831
  Serious: Yes (Hospitalization)
  Sender: FDA-Public Use
  Company Number: None

PATIENT
  Sex: Male
  Weight: 91 kg

DRUGS (3)
  1. BEVACIZUMAB (RHUMAB VEGF) [Suspect]
     Dosage: 1358 MG
     Dates: end: 20101229
  2. CARBOPLATIN [Suspect]
     Dosage: 750 MG
     Dates: end: 20101229
  3. TAXOL [Suspect]
     Dosage: 416 MG
     Dates: end: 20101229

REACTIONS (1)
  - PULMONARY EMBOLISM [None]
